FAERS Safety Report 19298329 (Version 1)
Quarter: 2021Q2

REPORT INFORMATION
  Report Type: Spontaneous
  Country: JP (occurrence: JP)
  Receive Date: 20210525
  Receipt Date: 20210525
  Transmission Date: 20210717
  Serious: Yes (Other)
  Sender: FDA-Public Use
  Company Number: JP-JNJFOC-20210532259

PATIENT
  Age: 83 Year
  Sex: Female

DRUGS (2)
  1. ELIQUIS [Interacting]
     Active Substance: APIXABAN
     Indication: ATRIAL FIBRILLATION
     Route: 065
  2. XARELTO [Suspect]
     Active Substance: RIVAROXABAN
     Indication: ATRIAL FIBRILLATION
     Dosage: UNK UNK, QD
     Route: 048
     Dates: start: 20210517

REACTIONS (4)
  - Off label use [Unknown]
  - Labelled drug-disease interaction medication error [Unknown]
  - Renal impairment [Not Recovered/Not Resolved]
  - Contraindicated product administered [Unknown]
